FAERS Safety Report 4957583-2 (Version None)
Quarter: 2006Q1

REPORT INFORMATION
  Report Type: 
  Country: None (occurrence: None)
  Receive Date: 20060324
  Receipt Date: 20060314
  Transmission Date: 20060701
  Serious: Yes (Life-Threatening, Hospitalization)
  Sender: FDA-Public Use
  Company Number: HQWYE019615DEC05

PATIENT
  Age: 51 Year
  Sex: Female
  Weight: 61.29 kg

DRUGS (6)
  1. EFFEXOR XR [Suspect]
     Indication: MAJOR DEPRESSION
     Dosage: 75 MG 1X PER 1 DAY, ORAL
     Route: 048
     Dates: end: 20051211
  2. ALCOHOL (ETHANOL,) [Suspect]
     Dosage: 2 GLASSES OF WINE MIXED WITH SPRITE AND ICE,
  3. BENADRYL [Suspect]
     Dosage: SEE IMAGE
     Dates: end: 20051210
  4. BENADRYL [Suspect]
     Dosage: SEE IMAGE
     Dates: start: 20051211, end: 20051211
  5. RABEPRAZOLE (RABEPRAZOLE) [Concomitant]
  6. HORMONE REPLACEMENT THERAPY AGENT (HORMONE REPLACEMENT THERAPY AGENT) [Concomitant]

REACTIONS (5)
  - ALCOHOL USE [None]
  - PALLOR [None]
  - RESPIRATORY ARREST [None]
  - SUICIDE ATTEMPT [None]
  - SWELLING [None]
